FAERS Safety Report 7273174-5 (Version None)
Quarter: 2011Q1

REPORT INFORMATION
  Report Type: 
  Country: None (occurrence: None)
  Receive Date: 20110203
  Receipt Date: 20101028
  Transmission Date: 20110831
  Serious: No
  Sender: FDA-Public Use
  Company Number: US-ABBOTT-10P-163-0682526-00

PATIENT
  Sex: Female

DRUGS (3)
  1. COMBIGAN [Concomitant]
     Indication: GLAUCOMA
     Dosage: 1 IN 8 HOURS, TO LEFT EYE
     Route: 047
  2. SYNTHROID [Suspect]
     Indication: HYPOTHYROIDISM
     Route: 048
     Dates: end: 20101028
  3. MAXZIDE [Concomitant]
     Indication: HYPERTENSION
     Dosage: 37.5/25 MG IN THE MORNING
     Route: 048

REACTIONS (4)
  - SYNCOPE [None]
  - FEELING ABNORMAL [None]
  - DIZZINESS [None]
  - DRUG DOSE OMISSION [None]
